FAERS Safety Report 6157531-6 (Version None)
Quarter: 2009Q2

REPORT INFORMATION
  Report Type: 
  Country: None (occurrence: None)
  Receive Date: 20090414
  Receipt Date: 20090407
  Transmission Date: 20091009
  Serious: Yes (Other)
  Sender: FDA-Public Use
  Company Number: CERZ-1000594

PATIENT
  Age: 72 Year
  Sex: Female

DRUGS (2)
  1. CEREZYME [Suspect]
     Indication: GAUCHER'S DISEASE
     Dosage: INTRAVENOUS, 30 U/KG, Q2W, INTRAVENOUS
     Route: 042
     Dates: start: 19970509
  2. TAMOXIFEN CITRATE [Concomitant]

REACTIONS (3)
  - HAEMANGIOMA [None]
  - HOT FLUSH [None]
  - LIPOMA [None]
